FAERS Safety Report 18537955 (Version 2)
Quarter: 2025Q1

REPORT INFORMATION
  Report Type: Spontaneous
  Country: FR (occurrence: FR)
  Receive Date: 20201123
  Receipt Date: 20250122
  Transmission Date: 20250408
  Serious: Yes (Hospitalization, Other)
  Sender: GILEAD
  Company Number: None

PATIENT
  Age: 78 Year
  Sex: Female
  Weight: 68 kg

DRUGS (1)
  1. YESCARTA [Suspect]
     Active Substance: AXICABTAGENE CILOLEUCEL
     Indication: Adult T-cell lymphoma/leukaemia recurrent
     Route: 042
     Dates: start: 20200512

REACTIONS (5)
  - Pancytopenia [Recovering/Resolving]
  - Cytopenia [Recovered/Resolved]
  - Cognitive disorder [Unknown]
  - Cytokine release syndrome [Recovering/Resolving]
  - Neutropenia [Unknown]

NARRATIVE: CASE EVENT DATE: 20200513
